FAERS Safety Report 7798472-8 (Version None)
Quarter: 2011Q4

REPORT INFORMATION
  Report Type: 
  Country: None (occurrence: None)
  Receive Date: 20111005
  Receipt Date: 20110930
  Transmission Date: 20120403
  Serious: Yes (Hospitalization, Other)
  Sender: FDA-Public Use
  Company Number: US-ROXANE LABORATORIES, INC.-2010-RO-01535RO

PATIENT
  Sex: Male

DRUGS (9)
  1. ELOTUZUMAB [Suspect]
     Indication: MULTIPLE MYELOMA
     Route: 042
     Dates: start: 20100920
  2. LENALIDOMIDE [Suspect]
     Indication: MULTIPLE MYELOMA
     Route: 048
     Dates: start: 20100927
  3. AMBIEN [Concomitant]
  4. DEXAMETHASONE [Suspect]
     Indication: MULTIPLE MYELOMA
     Route: 048
     Dates: start: 20100919
  5. REVLIMID [Concomitant]
  6. ZOFRAN [Concomitant]
  7. NEURONTIN [Concomitant]
  8. XANAX [Concomitant]
  9. PERCOCET [Concomitant]

REACTIONS (2)
  - DEEP VEIN THROMBOSIS [None]
  - PULMONARY EMBOLISM [None]
